FAERS Safety Report 23549521 (Version 1)
Quarter: 2024Q1

REPORT INFORMATION
  Report Type: Report from Study
  Country: BE (occurrence: BE)
  Receive Date: 20240221
  Receipt Date: 20240221
  Transmission Date: 20240410
  Serious: Yes (Hospitalization, Other)
  Sender: FDA-Public Use
  Company Number: BE-BRISTOL-MYERS SQUIBB COMPANY-2023-149451

PATIENT
  Age: 45 Year
  Sex: Female
  Weight: 79 kg

DRUGS (17)
  1. APIXABAN [Suspect]
     Active Substance: APIXABAN
     Indication: Embolism venous
     Dosage: 5 MG TWICE A DAY OR 2.5 MG TWICE A DAY ACCORDING TO THE RANDOMIZATION GROUP
     Route: 048
     Dates: start: 20230421
  2. PACLITAXEL [Suspect]
     Active Substance: PACLITAXEL
     Indication: Metastases to peritoneum
     Dosage: UNK
  3. DEXAMETHASONE [Concomitant]
     Active Substance: DEXAMETHASONE
     Indication: Chemotherapy
     Dosage: 4 MG, 1X/DAY
     Route: 048
  4. FUROSEMIDE [Concomitant]
     Active Substance: FUROSEMIDE
     Indication: Oedema peripheral
     Dosage: 40 MG, 1X/DAY
     Route: 048
     Dates: start: 20230818, end: 20230831
  5. GRANISETRON [Concomitant]
     Active Substance: GRANISETRON
     Indication: Chemotherapy
     Dosage: FREQ:24 H;IF NEEDED
     Route: 048
  6. LEVOCETIRIZINE [Concomitant]
     Active Substance: LEVOCETIRIZINE
     Indication: Chemotherapy
     Dosage: 5 MG, 1X/DAY
     Route: 048
  7. METOCLOPRAMIDE [Concomitant]
     Active Substance: METOCLOPRAMIDE
     Indication: Nausea
     Dosage: 30 MG, 1X/DAY
     Route: 054
     Dates: start: 20230816
  8. ONDANSETRON [Concomitant]
     Active Substance: ONDANSETRON
     Dosage: FREQ:24 H;IF NEEDED
     Route: 048
     Dates: start: 20230702, end: 20230831
  9. PANTOPRAZOLE [Concomitant]
     Active Substance: PANTOPRAZOLE
     Dosage: 40 MG, 1X/DAY
     Route: 048
     Dates: start: 20220411
  10. ACETAMINOPHEN [Concomitant]
     Active Substance: ACETAMINOPHEN
     Indication: Pain
     Dosage: FREQ:24 H;IF NEEDED
     Route: 054
     Dates: start: 20230630
  11. CELECXIB [Concomitant]
     Indication: Pain
     Dosage: FREQ:24 H;IF NEEDED
     Route: 048
     Dates: start: 20230621
  12. VITAMIN A PALMITATE [Concomitant]
     Active Substance: VITAMIN A PALMITATE
     Indication: Supplementation therapy
     Dosage: UNK
     Route: 048
     Dates: start: 20230706, end: 20230831
  13. FENTANYL [Concomitant]
     Active Substance: FENTANYL\FENTANYL CITRATE
     Indication: Pain
     Dosage: 1800 UG, 1X/DAY
     Route: 062
     Dates: start: 20230620
  14. LACTULOSE [Concomitant]
     Active Substance: LACTULOSE
     Indication: Constipation
     Dosage: FREQ:24 H;IF NEEDED
     Route: 048
  15. POLYETHYLENE GLYCOLS [Concomitant]
     Active Substance: POLYETHYLENE GLYCOLS
     Indication: Constipation
     Dosage: UNK, AS NEEDED
     Route: 048
  16. METOPROLOL [Concomitant]
     Active Substance: METOPROLOL
     Indication: Tachycardia
     Dosage: 25 MG, 1X/DAY
     Route: 048
     Dates: start: 20230311
  17. OXAZEPAM [Concomitant]
     Active Substance: OXAZEPAM
     Indication: Anxiety
     Dosage: 10 MG, 1X/DAY
     Route: 048
     Dates: start: 20230803

REACTIONS (5)
  - Nausea [Recovering/Resolving]
  - Vomiting [Recovering/Resolving]
  - Abdominal pain [Recovering/Resolving]
  - Feeding disorder [Recovering/Resolving]
  - Syncope [Recovering/Resolving]

NARRATIVE: CASE EVENT DATE: 20230829
